FAERS Safety Report 14633320 (Version 1)
Quarter: 2018Q1

REPORT INFORMATION
  Report Type: Spontaneous
  Country: US (occurrence: US)
  Receive Date: 20180313
  Receipt Date: 20180313
  Transmission Date: 20180509
  Serious: No
  Sender: FDA-Public Use
  Company Number: US-009507513-1802USA013518

PATIENT
  Sex: Female

DRUGS (1)
  1. ASMANEX HFA [Suspect]
     Active Substance: MOMETASONE FUROATE
     Dosage: 1 PUFF (100 MICROGRAM), BID, ROUTE: INHALATION

REACTIONS (3)
  - Device malfunction [Unknown]
  - No adverse event [Unknown]
  - Drug dose omission [Unknown]
